FAERS Safety Report 24215976 (Version 2)
Quarter: 2024Q3

REPORT INFORMATION
  Report Type: Spontaneous
  Country: US (occurrence: US)
  Receive Date: 20240816
  Receipt Date: 20240821
  Transmission Date: 20241017
  Serious: Yes (Other)
  Sender: CHATTEM
  Company Number: US-OPELLA-2024OHG026900

PATIENT
  Sex: Female

DRUGS (1)
  1. DULCOLAX PINK STOOL SOFTENER [Suspect]
     Active Substance: DOCUSATE SODIUM
     Indication: Product used for unknown indication
     Dates: start: 20240810

REACTIONS (3)
  - Foreign body in throat [Recovered/Resolved]
  - Dysphonia [Unknown]
  - Drug effect less than expected [Unknown]

NARRATIVE: CASE EVENT DATE: 20240810
